FAERS Safety Report 18132076 (Version 1)
Quarter: 2020Q3

REPORT INFORMATION
  Report Type: Other
  Country: CA (occurrence: CA)
  Receive Date: 20200811
  Receipt Date: 20200811
  Transmission Date: 20201103
  Serious: Yes (Life-Threatening)
  Sender: FDA-Public Use
  Company Number: CA-APOTEX-2020AP015230

PATIENT
  Age: 48 Year
  Sex: Female

DRUGS (2)
  1. APO?MOMETASONE [Suspect]
     Active Substance: MOMETASONE FUROATE
     Indication: HYPERSENSITIVITY
  2. APO?MOMETASONE [Suspect]
     Active Substance: MOMETASONE FUROATE
     Indication: SINUS PAIN
     Dosage: 4 DOSAGE FORM, BID
     Route: 045

REACTIONS (2)
  - Hypersensitivity [Recovered/Resolved]
  - Product substitution issue [Recovered/Resolved]
